FAERS Safety Report 19165451 (Version 1)
Quarter: 2021Q2

REPORT INFORMATION
  Report Type: Spontaneous
  Country: US (occurrence: US)
  Receive Date: 20210421
  Receipt Date: 20210421
  Transmission Date: 20210717
  Serious: Yes (Other)
  Sender: FDA-Public Use
  Company Number: None

PATIENT
  Age: 72 Year
  Sex: Male
  Weight: 84.9 kg

DRUGS (7)
  1. MULTIVITAMIN TABLET [Concomitant]
  2. CELEBREX 200 MG CAPSULE [Concomitant]
     Dates: start: 20170401
  3. CYANOCOBALAMIN 1000 MCG TABLET [Concomitant]
  4. CASIRIVIMAB AND IMDEVIMAB [Suspect]
     Active Substance: CASIRIVIMAB\IMDEVIMAB
     Indication: COVID-19
     Route: 041
     Dates: start: 20210413, end: 20210413
  5. CHOLECALCIFEROL 1000 UNIT TABLET [Concomitant]
  6. M?17/NETTLE/PUMPKIN/SAW PALMETTO PROSTATE THERAPY CAPSULE [Concomitant]
  7. FISH OIL 300 MG CAPSULE [Concomitant]

REACTIONS (4)
  - Amnesia [None]
  - Confusional state [None]
  - Impaired driving ability [None]
  - Adverse reaction [None]

NARRATIVE: CASE EVENT DATE: 20210413
